FAERS Safety Report 5361577-5 (Version None)
Quarter: 2007Q2

REPORT INFORMATION
  Report Type: 
  Country: None (occurrence: None)
  Receive Date: 20070619
  Receipt Date: 20070611
  Transmission Date: 20071010
  Serious: Yes (Hospitalization)
  Sender: FDA-Public Use
  Company Number: PHBS2007US09769

PATIENT
  Sex: Female
  Weight: 2.452 kg

DRUGS (1)
  1. SYNTOCINON [Suspect]
     Dosage: 5 IU, UNK
     Route: 030

REACTIONS (5)
  - APNOEA [None]
  - BRADYCARDIA [None]
  - DRUG ADMINISTRATION ERROR [None]
  - HYPONATRAEMIA [None]
  - OLIGURIA [None]
